FAERS Safety Report 5370131-0 (Version None)
Quarter: 2007Q2

REPORT INFORMATION
  Report Type: 
  Country: None (occurrence: None)
  Receive Date: 20070614
  Receipt Date: 20070228
  Transmission Date: 20071010
  Serious: Yes (Other)
  Sender: FDA-Public Use
  Company Number: BDI-009186

PATIENT
  Age: 41 Year
  Sex: Male
  Weight: 73 kg

DRUGS (2)
  1. MULTIHANCE [Suspect]
     Indication: BRAIN NEOPLASM
     Dosage: 15 ML ONCE IV
     Route: 042
     Dates: start: 20070220, end: 20070220
  2. MULTIHANCE [Suspect]
     Indication: NUCLEAR MAGNETIC RESONANCE IMAGING BRAIN
     Dosage: 15 ML ONCE IV
     Route: 042
     Dates: start: 20070220, end: 20070220

REACTIONS (1)
  - ANAPHYLACTIC SHOCK [None]
